FAERS Safety Report 5279496-1 (Version None)
Quarter: 2007Q1

REPORT INFORMATION
  Report Type: 
  Country: None (occurrence: None)
  Receive Date: 20070328
  Receipt Date: 20070319
  Transmission Date: 20070707
  Serious: Yes (Hospitalization, Other)
  Sender: FDA-Public Use
  Company Number: JP-ABBOTT-07P-087-0362839-00

PATIENT
  Age: 37 Year
  Sex: Male

DRUGS (7)
  1. AKINETON [Suspect]
     Indication: DRUG USE FOR UNKNOWN INDICATION
  2. HALOPERIDOL [Concomitant]
     Indication: AGITATION
     Route: 048
  3. HALOPERIDOL [Concomitant]
     Route: 030
     Dates: start: 20010925, end: 20010928
  4. CHLORPROMAZINE [Concomitant]
     Indication: DRUG USE FOR UNKNOWN INDICATION
  5. PROMETHAZINE [Concomitant]
     Indication: DRUG USE FOR UNKNOWN INDICATION
  6. PHENOBARBITAL TAB [Concomitant]
     Indication: DRUG USE FOR UNKNOWN INDICATION
  7. FLUNITRAZEPAM [Concomitant]
     Indication: DRUG USE FOR UNKNOWN INDICATION

REACTIONS (3)
  - NEUROLEPTIC MALIGNANT SYNDROME [None]
  - RENAL FAILURE ACUTE [None]
  - RHABDOMYOLYSIS [None]
